FAERS Safety Report 6471084-4 (Version None)
Quarter: 2009Q4

REPORT INFORMATION
  Report Type: 
  Country: None (occurrence: None)
  Receive Date: 20091203
  Receipt Date: 20091124
  Transmission Date: 20100525
  Serious: Yes (Hospitalization, Disabling, Other)
  Sender: FDA-Public Use
  Company Number: PHHY2009HN52021

PATIENT
  Age: 57 Year
  Sex: Male

DRUGS (1)
  1. DIOVAN HCT [Suspect]
     Dosage: 320/12.5 MG, PER DAY
     Route: 048

REACTIONS (8)
  - APHASIA [None]
  - CAROTID ARTERY OCCLUSION [None]
  - HAEMORRHAGIC STROKE [None]
  - HEMIPARESIS [None]
  - HYPERCHOLESTEROLAEMIA [None]
  - HYPERTRIGLYCERIDAEMIA [None]
  - ISCHAEMIC STROKE [None]
  - URETERIC STENOSIS [None]
